FAERS Safety Report 13588131 (Version 1)
Quarter: 2017Q2

REPORT INFORMATION
  Report Type: Spontaneous
  Country: US (occurrence: US)
  Receive Date: 20170528
  Receipt Date: 20170528
  Transmission Date: 20170830
  Serious: Yes (Other)
  Sender: FDA-Public Use
  Company Number: US-ELI_LILLY_AND_COMPANY-US201705008324

PATIENT
  Sex: Female

DRUGS (3)
  1. KLONOPIN [Concomitant]
     Active Substance: CLONAZEPAM
     Indication: PANIC DISORDER
     Dosage: UNK, UNKNOWN
     Route: 065
  2. FLUOXETINE HYDROCHLORIDE. [Suspect]
     Active Substance: FLUOXETINE HYDROCHLORIDE
     Indication: ANXIETY
     Dosage: 10 MG, WEEKLY (1/W)
     Route: 048
  3. FLUOXETINE HYDROCHLORIDE. [Suspect]
     Active Substance: FLUOXETINE HYDROCHLORIDE
     Indication: PANIC DISORDER
     Dosage: 10 MG, UNKNOWN
     Route: 048

REACTIONS (2)
  - Panic disorder [Recovered/Resolved]
  - Inappropriate schedule of drug administration [Unknown]
